FAERS Safety Report 6278659-6 (Version None)
Quarter: 2009Q3

REPORT INFORMATION
  Report Type: 
  Country: None (occurrence: None)
  Receive Date: 20090721
  Receipt Date: 20090706
  Transmission Date: 20100115
  Serious: Yes (Hospitalization)
  Sender: FDA-Public Use
  Company Number: 237483K09USA

PATIENT
  Age: 60 Year
  Sex: Female
  Weight: 89 kg

DRUGS (5)
  1. REBIF [Suspect]
     Indication: MULTIPLE SCLEROSIS
     Dosage: 44 MCG, 3 IN 1 WEEKS, SUBCUTANEOUS
     Route: 058
     Dates: start: 20030110
  2. UNSPECIFIED HIGH BLOOD PRESSURE MEDICATION (ANTIHYPERTENSIVES) [Concomitant]
  3. UNSPECIFIED HIGH CHOLESTEROL MEDICATION (CHOLESTEROL AND TRIGLYCERIDE [Concomitant]
  4. VICODIN [Concomitant]
  5. OTHER UNSPECIFIED MEDICATIONS (ALL OTHER THERAPEUTIC PRODUCTS) [Concomitant]

REACTIONS (7)
  - BACK DISORDER [None]
  - BACK INJURY [None]
  - BACK PAIN [None]
  - HEADACHE [None]
  - IATROGENIC INJURY [None]
  - POSTOPERATIVE WOUND INFECTION [None]
  - SPINAL CORD INJURY [None]
